FAERS Safety Report 21034632 (Version 1)
Quarter: 2022Q3

REPORT INFORMATION
  Report Type: Spontaneous
  Country: US (occurrence: None)
  Receive Date: 20220701
  Receipt Date: 20220701
  Transmission Date: 20221026
  Serious: Yes (unspecified)
  Sender: FDA-Public Use
  Company Number: None

PATIENT
  Age: 55 Year
  Sex: Female

DRUGS (1)
  1. IMATINIB [Suspect]
     Active Substance: IMATINIB
     Indication: Chronic myeloid leukaemia
     Dosage: OTHER QUANTITY : ONE TABLET;?FREQUENCY : TWICE A DAY;?
     Route: 048
     Dates: start: 20220505, end: 20220624

REACTIONS (4)
  - Abdominal discomfort [None]
  - Periorbital oedema [None]
  - White blood cell count increased [None]
  - Abdominal distension [None]
